FAERS Safety Report 9376908 (Version 2)
Quarter: 2013Q3

REPORT INFORMATION
  Report Type: Report from Study
  Country: BR (occurrence: BR)
  Receive Date: 20130701
  Receipt Date: 20130809
  Transmission Date: 20140515
  Serious: Yes (Other)
  Sender: FDA-Public Use
  Company Number: PHHY2013BR036671

PATIENT
  Age: 54 Year
  Sex: Female

DRUGS (7)
  1. GILENYA [Suspect]
     Indication: MULTIPLE SCLEROSIS
     Dosage: 0.5 MG, QD
     Route: 048
     Dates: start: 20130205, end: 20130325
  2. GILENYA [Suspect]
     Dosage: 0.5 MG, QD
     Route: 048
  3. VITAMIN B COMPLEX [Concomitant]
  4. VIT. E [Concomitant]
  5. VITAMIIN C [Concomitant]
  6. VITAMIN B-12 [Concomitant]
  7. ASA [Concomitant]

REACTIONS (17)
  - Vision blurred [Recovered/Resolved]
  - Feeling cold [Not Recovered/Not Resolved]
  - Nervousness [Recovering/Resolving]
  - Insomnia [Recovering/Resolving]
  - Mental disorder [Recovering/Resolving]
  - Malaise [Not Recovered/Not Resolved]
  - Decreased appetite [Recovering/Resolving]
  - Weight decreased [Recovering/Resolving]
  - Visual acuity reduced [Not Recovered/Not Resolved]
  - Panic disorder [Recovering/Resolving]
  - Dizziness postural [Recovered/Resolved]
  - Multiple sclerosis relapse [Unknown]
  - Hypoaesthesia [Not Recovered/Not Resolved]
  - Gait disturbance [Recovered/Resolved]
  - Depression [Recovering/Resolving]
  - Crying [Recovering/Resolving]
  - Feeling abnormal [Recovering/Resolving]
